FAERS Safety Report 5568127-9 (Version None)
Quarter: 2007Q4

REPORT INFORMATION
  Report Type: 
  Country: None (occurrence: None)
  Receive Date: 20071218
  Receipt Date: 20071206
  Transmission Date: 20080405
  Serious: Yes (Other)
  Sender: FDA-Public Use
  Company Number: SPV1-2007-05126

PATIENT
  Sex: Female

DRUGS (5)
  1. ADDERALL 10 [Suspect]
     Indication: ATTENTION DEFICIT/HYPERACTIVITY DISORDER
     Dosage: 10 MG, 1X/DAY:QD, ORAL : 20 MG, 1X/DAY:QD, ORAL
     Route: 048
     Dates: start: 20071101, end: 20071202
  2. ADDERALL 10 [Suspect]
     Indication: ATTENTION DEFICIT/HYPERACTIVITY DISORDER
     Dosage: 10 MG, 1X/DAY:QD, ORAL : 20 MG, 1X/DAY:QD, ORAL
     Route: 048
     Dates: start: 20071203, end: 20071206
  3. XANAX [Concomitant]
  4. CITALOPRAM HYDROBROMIDE [Concomitant]
  5. MAXALT (RIZATRIPTAN) [Concomitant]

REACTIONS (1)
  - RHABDOMYOLYSIS [None]
